FAERS Safety Report 4423422-1 (Version None)
Quarter: 2004Q3

REPORT INFORMATION
  Report Type: 
  Country: None (occurrence: None)
  Receive Date: 20040713
  Receipt Date: 20040319
  Transmission Date: 20050211
  Serious: No
  Sender: FDA-Public Use
  Company Number: PHEH2004US03250

PATIENT
  Age: 32 Year
  Sex: Female

DRUGS (3)
  1. ELIDEL [Suspect]
     Indication: ECZEMA
     Dosage: BID
     Dates: start: 20040227
  2. ALCOHOL(ETHANOL) [Suspect]
  3. ORTHO-NOVUM 7/7/7-28(NORETHISTERONE) [Concomitant]

REACTIONS (3)
  - ALCOHOL INTERACTION [None]
  - ERYTHEMA [None]
  - RASH PRURITIC [None]
